FAERS Safety Report 5902681-X (Version None)
Quarter: 2008Q3

REPORT INFORMATION
  Report Type: 
  Country: None (occurrence: None)
  Receive Date: 20080929
  Receipt Date: 20080929
  Transmission Date: 20090109
  Serious: No
  Sender: FDA-Public Use
  Company Number: None

PATIENT
  Age: 71 Year
  Sex: Male
  Weight: 85.8 kg

DRUGS (7)
  1. LOVENOX [Suspect]
     Indication: ATRIAL FIBRILLATION
     Dosage: 60MG Q12HOURS SQ
     Route: 058
     Dates: start: 20080902, end: 20080905
  2. CARDIZEM [Concomitant]
  3. CARDURA [Concomitant]
  4. LOPRESSOR [Concomitant]
  5. LOTENSIN [Concomitant]
  6. NEXIUM [Concomitant]
  7. ZOFRAN [Concomitant]

REACTIONS (3)
  - HAEMATOCRIT DECREASED [None]
  - HAEMOGLOBIN DECREASED [None]
  - PLATELET COUNT DECREASED [None]
